FAERS Safety Report 25330101 (Version 1)
Quarter: 2025Q2

REPORT INFORMATION
  Report Type: Spontaneous
  Country: CN (occurrence: CN)
  Receive Date: 20250519
  Receipt Date: 20250519
  Transmission Date: 20250716
  Serious: Yes (Hospitalization)
  Sender: COHERUS
  Company Number: CN-SHANGHAI JUNSHI BIOSCIENCES CO., LTD.-CN2025014117

PATIENT

DRUGS (8)
  1. TORIPALIMAB [Suspect]
     Active Substance: TORIPALIMAB
     Indication: Nasopharyngeal cancer stage IV
     Route: 041
     Dates: start: 20250327, end: 20250327
  2. TORIPALIMAB [Suspect]
     Active Substance: TORIPALIMAB
     Indication: Nonkeratinising carcinoma of nasopharynx
  3. DOCETAXEL [Suspect]
     Active Substance: DOCETAXEL
     Indication: Nasopharyngeal cancer stage IV
     Route: 041
     Dates: start: 20250328, end: 20250328
  4. DOCETAXEL [Suspect]
     Active Substance: DOCETAXEL
     Indication: Nonkeratinising carcinoma of nasopharynx
  5. FLUOROURACIL [Suspect]
     Active Substance: FLUOROURACIL
     Indication: Nasopharyngeal cancer stage IV
     Route: 041
     Dates: start: 20250328, end: 20250328
  6. FLUOROURACIL [Suspect]
     Active Substance: FLUOROURACIL
     Indication: Nonkeratinising carcinoma of nasopharynx
  7. CISPLATIN [Suspect]
     Active Substance: CISPLATIN
     Indication: Nasopharyngeal cancer stage IV
     Dosage: 50 MG, QD
     Route: 041
     Dates: start: 20250328, end: 20250330
  8. CISPLATIN [Suspect]
     Active Substance: CISPLATIN
     Indication: Nonkeratinising carcinoma of nasopharynx

REACTIONS (1)
  - Myelosuppression [Recovering/Resolving]

NARRATIVE: CASE EVENT DATE: 20250406
